FAERS Safety Report 6206249-X (Version None)
Quarter: 2009Q2

REPORT INFORMATION
  Report Type: 
  Country: None (occurrence: None)
  Receive Date: 20090526
  Receipt Date: 20090513
  Transmission Date: 20091009
  Serious: Yes (Other)
  Sender: FDA-Public Use
  Company Number: 235713K07USA

PATIENT
  Age: 55 Year
  Sex: Female

DRUGS (11)
  1. REBIF [Suspect]
     Indication: MULTIPLE SCLEROSIS
     Dosage: 44 MCG, 3 IN 1 WEEKS, SUBCUTANEOUS, 8.8 MCG
     Route: 058
     Dates: start: 20051122, end: 20080101
  2. REBIF [Suspect]
     Indication: MULTIPLE SCLEROSIS
     Dosage: 44 MCG, 3 IN 1 WEEKS, SUBCUTANEOUS, 8.8 MCG
     Route: 058
     Dates: start: 20090501
  3. KEPPRA [Concomitant]
  4. OXYCODONE [Concomitant]
  5. AMITRIPTLINE HYDROCHLORIDE TAB [Concomitant]
  6. AMANTADINE HCL [Concomitant]
  7. LIPITOR [Concomitant]
  8. BACLOFEN [Concomitant]
  9. ALEVE (CAPLET) [Concomitant]
  10. HYDROCODONE BITARTRATE [Concomitant]
  11. LAMOTRIGINE [Concomitant]

REACTIONS (1)
  - CARDIOMYOPATHY [None]
